FAERS Safety Report 24628285 (Version 3)
Quarter: 2025Q1

REPORT INFORMATION
  Report Type: Report from Study
  Country: JP (occurrence: JP)
  Receive Date: 20241117
  Receipt Date: 20250102
  Transmission Date: 20250408
  Serious: Yes (Hospitalization, Other)
  Sender: ALEXION PHARMACEUTICALS
  Company Number: JP-ASTRAZENECA-240104966_013120_P_1

PATIENT
  Age: 66 Year
  Weight: 78 kg

DRUGS (24)
  1. TREMELIMUMAB [Suspect]
     Active Substance: TREMELIMUMAB
     Indication: Non-small cell lung cancer
  2. TREMELIMUMAB [Suspect]
     Active Substance: TREMELIMUMAB
     Indication: Non-small cell lung cancer
  3. DURVALUMAB [Suspect]
     Active Substance: DURVALUMAB
     Indication: Non-small cell lung cancer
     Dosage: 1500 MILLIGRAM, Q3W
  4. DURVALUMAB [Suspect]
     Active Substance: DURVALUMAB
     Indication: Non-small cell lung cancer
     Dosage: 1500 MILLIGRAM, Q3W
  5. DURVALUMAB [Suspect]
     Active Substance: DURVALUMAB
     Dosage: 1500 MILLIGRAM, Q3W
  6. DURVALUMAB [Suspect]
     Active Substance: DURVALUMAB
     Dosage: 1500 MILLIGRAM, Q3W
  7. DURVALUMAB [Suspect]
     Active Substance: DURVALUMAB
  8. CANDESARTAN [Suspect]
     Active Substance: CANDESARTAN
     Indication: Non-small cell lung cancer
  9. AMPICILLIN SODIUM\SULBACTAM SODIUM [Suspect]
     Active Substance: AMPICILLIN SODIUM\SULBACTAM SODIUM
     Indication: Non-small cell lung cancer
     Route: 065
  10. CARBOPLATIN [Concomitant]
     Active Substance: CARBOPLATIN
     Indication: Non-small cell lung cancer
     Route: 065
  11. PACLITAXEL [Concomitant]
     Active Substance: PACLITAXEL
     Indication: Non-small cell lung cancer
     Route: 065
  12. DECADRON [Concomitant]
     Active Substance: DEXAMETHASONE
     Indication: Non-small cell lung cancer
  13. VONOPRAZAN FUMARATE [Concomitant]
     Active Substance: VONOPRAZAN FUMARATE
  14. VONOPRAZAN FUMARATE [Concomitant]
     Active Substance: VONOPRAZAN FUMARATE
  15. VONOPRAZAN FUMARATE [Concomitant]
     Active Substance: VONOPRAZAN FUMARATE
  16. PREDONINE [Concomitant]
     Active Substance: PREDNISOLONE
     Indication: Non-small cell lung cancer
  17. PREDONINE [Concomitant]
     Active Substance: PREDNISOLONE
  18. ADRENAL [Concomitant]
     Active Substance: EPINEPHRINE
     Indication: Brain neoplasm
     Route: 065
  19. ADRENAL [Concomitant]
     Active Substance: EPINEPHRINE
     Indication: Brain neoplasm
     Route: 065
  20. PRECEDEX [Concomitant]
     Active Substance: DEXMEDETOMIDINE HYDROCHLORIDE
     Indication: Brain neoplasm
     Route: 065
  21. PRECEDEX [Concomitant]
     Active Substance: DEXMEDETOMIDINE HYDROCHLORIDE
     Indication: Metastases to central nervous system
     Route: 065
  22. PRECEDEX [Concomitant]
     Active Substance: DEXMEDETOMIDINE HYDROCHLORIDE
     Route: 065
  23. PRECEDEX [Concomitant]
     Active Substance: DEXMEDETOMIDINE HYDROCHLORIDE
     Route: 065
  24. PREDNISOLONE [Concomitant]
     Active Substance: PREDNISOLONE
     Indication: Metastases to central nervous system
     Route: 065

REACTIONS (15)
  - Pneumonia haemophilus [Recovered/Resolved]
  - Loss of consciousness [Recovered/Resolved]
  - Diarrhoea [Recovered/Resolved]
  - Blood pressure decreased [Recovered/Resolved]
  - Erythema [Recovered/Resolved]
  - Adrenal insufficiency [Recovered/Resolved]
  - Abdominal discomfort [Recovered/Resolved]
  - Headache [Recovered/Resolved]
  - Pulmonary toxicity [Recovering/Resolving]
  - Osteoarthritis [Not Recovered/Not Resolved]
  - Gait disturbance [Recovering/Resolving]
  - Hypertension [Recovered/Resolved]
  - Pulmonary toxicity [Recovered/Resolved]
  - Normocytic anaemia [Recovered/Resolved]
  - Neutrophil count decreased [Recovered/Resolved]
